FAERS Safety Report 18452888 (Version 1)
Quarter: 2020Q4

REPORT INFORMATION
  Report Type: Spontaneous
  Country: US (occurrence: US)
  Receive Date: 20201102
  Receipt Date: 20201102
  Transmission Date: 20210114
  Serious: Yes (Disabling)
  Sender: FDA-Public Use
  Company Number: None

PATIENT
  Sex: Female
  Weight: 107.96 kg

DRUGS (19)
  1. OXBUTIN [Concomitant]
  2. FERROUS SULFATE. [Concomitant]
     Active Substance: FERROUS SULFATE
  3. VITAMIN D3 [Concomitant]
     Active Substance: CHOLECALCIFEROL
  4. METOPROLO ER [Concomitant]
  5. PROBIOTIC PEARLS [Concomitant]
  6. ASPIRIN. [Concomitant]
     Active Substance: ASPIRIN
  7. CRANBERRY. [Concomitant]
     Active Substance: CRANBERRY
  8. OMEGA 3 FISH OIL [Concomitant]
     Active Substance: FISH OIL\OMEGA-3 FATTY ACIDS
  9. SENIOR VITAMIN [Concomitant]
  10. CAPLYTA [Suspect]
     Active Substance: LUMATEPERONE
     Indication: SCHIZOPHRENIA
     Dosage: ?          QUANTITY:1 DF DOSAGE FORM;?
     Route: 048
     Dates: start: 20200902, end: 20201030
  11. ATORVASTATIN [Concomitant]
     Active Substance: ATORVASTATIN
  12. IREBESARTAN [Concomitant]
  13. SPIRANOLACTONE [Concomitant]
     Active Substance: SPIRONOLACTONE
  14. METHENAMINE [Concomitant]
     Active Substance: METHENAMINE
  15. SINGULAIR( MONTELUKAST [Concomitant]
  16. CALCIUM [Concomitant]
     Active Substance: CALCIUM
  17. SUPER B VITAIN [Concomitant]
  18. VITAMIN C [Concomitant]
     Active Substance: ASCORBIC ACID
  19. PANTOPRAZOLE [Concomitant]
     Active Substance: PANTOPRAZOLE

REACTIONS (4)
  - Fatigue [None]
  - Headache [None]
  - Dizziness [None]
  - Vein disorder [None]
